FAERS Safety Report 18750811 (Version 6)
Quarter: 2021Q4

REPORT INFORMATION
  Report Type: Report from Study
  Country: CN (occurrence: CN)
  Receive Date: 20210118
  Receipt Date: 20211028
  Transmission Date: 20220304
  Serious: Yes (Death)
  Sender: FDA-Public Use
  Company Number: CN-KARYOPHARM THERAPEUTICS, INC.-2021KPT000065

PATIENT
  Age: 57 Year
  Sex: Female

DRUGS (20)
  1. SELINEXOR [Suspect]
     Active Substance: SELINEXOR
     Indication: Plasma cell myeloma
     Dosage: 80 MG, 2X/WEEK
     Route: 048
     Dates: start: 20201225, end: 20210110
  2. DEXAMETHASONE [Suspect]
     Active Substance: DEXAMETHASONE
     Indication: Plasma cell myeloma
     Dosage: 20 UG, 2X/WEEK
     Route: 048
     Dates: start: 20201225, end: 20210110
  3. SODIUM BICARBONATE [Concomitant]
     Active Substance: SODIUM BICARBONATE
     Indication: Blood alkalinisation therapy
     Dosage: 40 ML
     Route: 042
     Dates: start: 20201225, end: 20210106
  4. TORSEMIDE [Concomitant]
     Active Substance: TORSEMIDE
     Indication: Diuretic therapy
     Dosage: 20 MG, SINGLE
     Route: 042
     Dates: start: 20201231, end: 20201231
  5. TORSEMIDE [Concomitant]
     Active Substance: TORSEMIDE
     Dosage: 1 DOSAGE FORM, SINGLE
     Route: 042
     Dates: start: 20210102, end: 20210105
  6. ALBUMIN HUMAN [Concomitant]
     Active Substance: ALBUMIN HUMAN
     Indication: Symptomatic treatment
     Dosage: 10 G, ONCE ON 03JAN2021, TWICE ON 04JAN2021
     Route: 042
     Dates: start: 20210103, end: 20210104
  7. POTASSIUM CHLORIDE [Concomitant]
     Active Substance: POTASSIUM CHLORIDE
     Indication: Hypokalaemia
     Dosage: 4 G, SINGLE
     Route: 048
     Dates: start: 20210104, end: 20210104
  8. POTASSIUM CHLORIDE [Concomitant]
     Active Substance: POTASSIUM CHLORIDE
     Dosage: 4 G, SINGLE
     Route: 048
     Dates: start: 20210106, end: 20210106
  9. POTASSIUM CHLORIDE [Concomitant]
     Active Substance: POTASSIUM CHLORIDE
     Dosage: 9 G
     Route: 048
     Dates: start: 20201209, end: 20201209
  10. POTASSIUM CHLORIDE [Concomitant]
     Active Substance: POTASSIUM CHLORIDE
     Dosage: 3 G
     Route: 048
     Dates: start: 20201210, end: 20201210
  11. POTASSIUM CHLORIDE [Concomitant]
     Active Substance: POTASSIUM CHLORIDE
     Dosage: 5 G, SINGLE
     Route: 048
     Dates: start: 20201227, end: 20201227
  12. GRANULOCYTE COLONY-STIMULATING FACTOR NOS [Concomitant]
     Active Substance: GRANULOCYTE COLONY-STIMULATING FACTOR NOS
     Indication: Leukopenia
     Dosage: 100 UG, SINGLE
     Route: 058
     Dates: start: 20210106, end: 20210106
  13. GRANULOCYTE COLONY-STIMULATING FACTOR NOS [Concomitant]
     Active Substance: GRANULOCYTE COLONY-STIMULATING FACTOR NOS
     Indication: Platelet count decreased
  14. SALT [Concomitant]
     Active Substance: SODIUM CHLORIDE
     Indication: Hyponatraemia
     Dosage: 2 DOSAGE FORM, TID
     Route: 048
     Dates: start: 20201227
  15. NORFLOXACIN [Concomitant]
     Active Substance: NORFLOXACIN
     Indication: Anti-infective therapy
     Dosage: 0.2 G, BID
     Route: 048
     Dates: start: 20201228, end: 20201231
  16. BICYCLOL [Concomitant]
     Active Substance: BICYCLOL
     Indication: Hepatobiliary disorder prophylaxis
     Dosage: 50 MG, BID
     Route: 048
     Dates: start: 20201229
  17. HAI KUN SHEN XI [Concomitant]
     Indication: Blood creatinine increased
     Dosage: 2 DOSAGE FORM, TID
     Route: 048
     Dates: start: 20201231
  18. SHEN SHUAI NING [Concomitant]
     Indication: Blood creatinine increased
     Dosage: 4 DOSAGE FORM, TID
     Route: 048
     Dates: start: 20201231
  19. TRIMETAZIDINE [Concomitant]
     Active Substance: TRIMETAZIDINE
     Indication: Cardiovascular event prophylaxis
     Dosage: 20 MG, TID
     Route: 048
     Dates: start: 20210103
  20. MEGESTROL [Concomitant]
     Active Substance: MEGESTROL
     Indication: Vomiting
     Dosage: 80 MG, QD
     Route: 048
     Dates: start: 20201225

REACTIONS (1)
  - Death [Fatal]

NARRATIVE: CASE EVENT DATE: 20210113
